FAERS Safety Report 19970956 (Version 1)
Quarter: 2021Q4

REPORT INFORMATION
  Report Type: Report from Study
  Country: US (occurrence: US)
  Receive Date: 20211019
  Receipt Date: 20211019
  Transmission Date: 20220303
  Serious: Yes (Other)
  Sender: FDA-Public Use
  Company Number: 2021A719957

PATIENT
  Age: 81 Year
  Sex: Female
  Weight: 75.8 kg

DRUGS (5)
  1. TAGRISSO [Suspect]
     Active Substance: OSIMERTINIB
     Indication: Adenocarcinoma
     Route: 048
     Dates: start: 20210823
  2. ATORVASTATIN [Concomitant]
     Active Substance: ATORVASTATIN
     Route: 048
  3. NIVOLUMAB [Concomitant]
     Active Substance: NIVOLUMAB
     Indication: Non-small cell lung cancer
     Dosage: 230.0MG UNKNOWN
     Route: 017
     Dates: start: 20210513, end: 20210527
  4. AMLODIPINE [Concomitant]
     Active Substance: AMLODIPINE BESYLATE
     Route: 048
  5. VITAMIN B COMPLEX [Concomitant]
     Active Substance: CYANOCOBALAMIN\DEXPANTHENOL\NIACINAMIDE\PYRIDOXINE HYDROCHLORIDE\RIBOFLAVIN 5^-PHOSPHATE SODIUM\THIA
     Dosage: DAILY
     Route: 048

REACTIONS (12)
  - Renal disorder [Unknown]
  - Fall [Unknown]
  - Fatigue [Unknown]
  - Gait disturbance [Unknown]
  - Cough [Recovered/Resolved]
  - Depression [Unknown]
  - Dyspnoea [Unknown]
  - Osteopenia [Unknown]
  - Nausea [Recovered/Resolved]
  - Frequent bowel movements [Recovered/Resolved]
  - Thinking abnormal [Unknown]
  - Nervousness [Unknown]
